FAERS Safety Report 9291206 (Version 1)
Quarter: 2012Q4

REPORT INFORMATION
  Report Type: Spontaneous
  Country: TR (occurrence: None)
  Receive Date: 20121123
  Receipt Date: 20121123
  Transmission Date: 20130627
  Serious: Yes (Death)
  Sender: FDA-Public Use
  Company Number: TR-AGG-09-2010-0024

PATIENT
  Age: 84 Year
  Sex: Female

DRUGS (7)
  1. AGGRASTAT [Suspect]
     Indication: THROMBOSIS PROPHYLAXIS
     Dosage: 5 �g/kg x 1, 1 x a day intravenous bolus
     Route: 040
  2. TIROFIBAN [Suspect]
     Indication: THROMBOSIS PROPHYLAXIS
     Dosage: 0.075 �g/kg x 1, 1 x a minute Intravenous
     Route: 042
  3. ASPIRIN [Suspect]
     Dosage: 300mg x 1, 1 xa day
  4. CLOPIDOGREL BISULFATE [Suspect]
     Dosage: 600mg x 1, 1 a day
  5. CLOPIDOGREL BISULFATE [Suspect]
     Dosage: 75Mgx 1, 1 x a day
  6. HEPARIN [Suspect]
     Dosage: 10000Iu x 1, 1 x a day intravenous
     Route: 042
  7. ENOXAPARIN SODIUM [Suspect]
     Dosage: 20000Iu x 2, 1 x a day

REACTIONS (9)
  - Bundle branch block left [None]
  - Haemoptysis [None]
  - Pulmonary oedema [None]
  - Respiratory arrest [None]
  - Lung infiltration [None]
  - Left ventricular failure [None]
  - Haematocrit decreased [None]
  - Pulmonary alveolar haemorrhage [None]
  - Lung consolidation [None]
